FAERS Safety Report 20768337 (Version 1)
Quarter: 2022Q2

REPORT INFORMATION
  Report Type: Spontaneous
  Country: US (occurrence: US)
  Receive Date: 20220429
  Receipt Date: 20220429
  Transmission Date: 20220721
  Serious: No
  Sender: FDA-Public Use
  Company Number: US-ALKEM LABORATORIES LIMITED-US-ALKEM-2021-07086

PATIENT

DRUGS (1)
  1. LIDOCAINE [Suspect]
     Active Substance: LIDOCAINE
     Indication: Product used for unknown indication
     Dosage: UNK
     Route: 065

REACTIONS (9)
  - Dry mouth [Unknown]
  - Somnolence [Unknown]
  - Hypoaesthesia oral [Unknown]
  - Dysaesthesia [Unknown]
  - Dizziness [Unknown]
  - Nausea [Unknown]
  - Dysarthria [Unknown]
  - Vision blurred [Unknown]
  - Headache [Unknown]
